FAERS Safety Report 14480541 (Version 1)
Quarter: 2018Q1

REPORT INFORMATION
  Report Type: Spontaneous
  Country: US (occurrence: US)
  Receive Date: 20180201
  Receipt Date: 20180201
  Transmission Date: 20180509
  Serious: Yes (Other)
  Sender: FDA-Public Use
  Company Number: None

PATIENT
  Age: 63 Year
  Sex: Female

DRUGS (14)
  1. ISOSORBIDE DINITRATE. [Concomitant]
     Active Substance: ISOSORBIDE DINITRATE
  2. METOPROLOL TARTRATE. [Concomitant]
     Active Substance: METOPROLOL TARTRATE
  3. NEURONTIN [Concomitant]
     Active Substance: GABAPENTIN
  4. MAVYRET [Suspect]
     Active Substance: GLECAPREVIR\PIBRENTASVIR
     Indication: HEPATITIS C
     Dosage: 100-40MG 3 TABS ONCE DAILY BY MOUTH WITH FOOD?
     Route: 048
     Dates: start: 20160126, end: 20180130
  5. SPIRIVA RESPIMAT [Concomitant]
     Active Substance: TIOTROPIUM BROMIDE
  6. PANTOPRAZOLE [Concomitant]
     Active Substance: PANTOPRAZOLE
  7. ELIQUIS [Concomitant]
     Active Substance: APIXABAN
  8. ADVAIR DISKUS [Suspect]
     Active Substance: FLUTICASONE PROPIONATE\SALMETEROL XINAFOATE
  9. DOCUSATE [Concomitant]
     Active Substance: DOCUSATE
  10. METHADONE [Concomitant]
     Active Substance: METHADONE HYDROCHLORIDE
  11. CLONAZEPAM. [Concomitant]
     Active Substance: CLONAZEPAM
  12. FOLIC ACID. [Concomitant]
     Active Substance: FOLIC ACID
  13. DILTIAZEM CD [Concomitant]
     Active Substance: DILTIAZEM
  14. NICOTINE PATCHES [Concomitant]
     Active Substance: NICOTINE

REACTIONS (5)
  - Pneumonia [None]
  - Dehydration [None]
  - Drug dose omission [None]
  - Headache [None]
  - Chromaturia [None]
